FAERS Safety Report 20248826 (Version 1)
Quarter: 2021Q4

REPORT INFORMATION
  Report Type: Spontaneous
  Country: US (occurrence: None)
  Receive Date: 20211228
  Receipt Date: 20211228
  Transmission Date: 20220303
  Serious: Yes (Hospitalization)
  Sender: FDA-Public Use
  Company Number: None

PATIENT
  Age: 89 Year
  Sex: Male

DRUGS (1)
  1. METOPROLOL [Suspect]
     Active Substance: METOPROLOL
     Dates: start: 20211018

REACTIONS (3)
  - Syncope [None]
  - Fall [None]
  - COVID-19 [None]

NARRATIVE: CASE EVENT DATE: 20211018
